FAERS Safety Report 9798786 (Version 2)
Quarter: 2014Q1

REPORT INFORMATION
  Report Type: Spontaneous
  Country: FR (occurrence: None)
  Receive Date: 20131230
  Receipt Date: 20140205
  Transmission Date: 20141002
  Serious: Yes (Other)
  Sender: FDA-Public Use
  Company Number: AXC-2013-000684

PATIENT
  Age: 36 Year
  Sex: Female
  Weight: 55 kg

DRUGS (3)
  1. PYLERA [Suspect]
     Indication: ULCER
     Route: 048
     Dates: start: 20130827, end: 20130905
  2. PYLERA [Suspect]
     Indication: PEPTIC ULCER HELICOBACTER
     Route: 048
     Dates: start: 20130827, end: 20130905
  3. OMEPRAZOLE [Suspect]
     Indication: ULCER
     Route: 048
     Dates: start: 20130827, end: 20130905

REACTIONS (6)
  - Depressed mood [None]
  - Local swelling [None]
  - Fatigue [None]
  - Herpes virus infection [None]
  - Nasopharyngitis [None]
  - Ear infection [None]
